FAERS Safety Report 9321371 (Version 2)
Quarter: 2013Q4

REPORT INFORMATION
  Report Type: Spontaneous
  Country: DK (occurrence: IT)
  Receive Date: 20130531
  Receipt Date: 20131206
  Transmission Date: 20140711
  Serious: Yes (Disabling)
  Sender: FDA-Public Use
  Company Number: IT-FRI-1000045509

PATIENT
  Age: 41 Year
  Sex: Female

DRUGS (5)
  1. CITALOPRAM ORAL SOLUTION [Suspect]
     Dosage: OVERDOSE: 600 MG
     Route: 048
     Dates: start: 20130505, end: 20130505
  2. RIZEN [Suspect]
     Dosage: OVERDOSE: 200 MG
     Route: 048
     Dates: start: 20130505, end: 20130505
  3. SINCROVER [Suspect]
     Route: 048
     Dates: start: 20130505, end: 20130505
  4. FELDENE [Suspect]
     Route: 048
     Dates: start: 20130505, end: 20130505
  5. JURNISTA [Suspect]
     Route: 048
     Dates: start: 20130505, end: 20130505

REACTIONS (1)
  - Poisoning [Recovering/Resolving]
